FAERS Safety Report 6732122-4 (Version None)
Quarter: 2010Q2

REPORT INFORMATION
  Report Type: 
  Country: None (occurrence: None)
  Receive Date: 20100519
  Receipt Date: 20100423
  Transmission Date: 20101027
  Serious: Yes (Other)
  Sender: FDA-Public Use
  Company Number: PHHY2010JP27659

PATIENT
  Age: 87 Year
  Sex: Female

DRUGS (9)
  1. FAMVIR [Suspect]
     Indication: HERPES ZOSTER
     Dosage: 1500 MG DAILY
     Route: 048
     Dates: start: 20100319, end: 20100321
  2. LOXOPROFEN SODIUM [Concomitant]
     Dosage: UNK
     Dates: start: 20100319, end: 20100321
  3. BETAMETHASONE VALERATE [Concomitant]
  4. ASPIRIN [Concomitant]
  5. ATORVASTATIN CALCIUM [Concomitant]
  6. CIMETIDINE [Concomitant]
  7. ALFACALCIDOL [Concomitant]
  8. LIMAPROST [Concomitant]
  9. CANDESARTAN CILEXETIL [Concomitant]

REACTIONS (2)
  - DELIRIUM [None]
  - ENCEPHALITIS HERPES [None]
